FAERS Safety Report 9628708 (Version 1)
Quarter: 2013Q4

REPORT INFORMATION
  Report Type: Spontaneous
  Country: US (occurrence: US)
  Receive Date: 20131017
  Receipt Date: 20131017
  Transmission Date: 20140711
  Serious: Yes (Death)
  Sender: FDA-Public Use
  Company Number: US-ALEXION PHARMACEUTICALS INC.-A201302577

PATIENT
  Sex: 0

DRUGS (6)
  1. SOLIRIS 300MG [Suspect]
     Indication: TRANSPLANT REJECTION
     Dosage: 1200 MG, SINGLE
     Route: 042
  2. SOLIRIS 300MG [Suspect]
     Indication: OFF LABEL USE
     Dosage: 900 MG, SINGLE
     Route: 042
  3. SOLIRIS 300MG [Suspect]
     Dosage: 900 MG, SINGLE
     Route: 042
  4. IVIG [Concomitant]
     Indication: TRANSPLANT REJECTION
     Dosage: 1 G/KG, 3 DOSES
     Route: 042
  5. RITUXIMAB [Concomitant]
     Indication: TRANSPLANT REJECTION
     Dosage: 375 MG/M, 5 DOSES
  6. BORTEZOMIB [Concomitant]
     Indication: TRANSPLANT REJECTION
     Dosage: 1.3 MG/M, 4 DOSES

REACTIONS (2)
  - Transplant rejection [Fatal]
  - Off label use [Unknown]
